FAERS Safety Report 25892094 (Version 1)
Quarter: 2025Q4

REPORT INFORMATION
  Report Type: Spontaneous
  Country: US (occurrence: US)
  Receive Date: 20251007
  Receipt Date: 20251007
  Transmission Date: 20260118
  Serious: No
  Sender: INTRABIO
  Company Number: US-IBO-202500179

PATIENT
  Age: 42 Year
  Sex: Male
  Weight: 84 kg

DRUGS (1)
  1. AQNEURSA [Suspect]
     Active Substance: LEVACETYLLEUCINE
     Indication: Product used for unknown indication
     Dosage: AQNEURSA 1 GRAM SACHET, TAKE 2 PACKETS IN THE MORNING, 1 PACKET IN THE AFTERNOON, AND 1 PACKET IN TH
     Route: 065
     Dates: start: 20250225, end: 20250701

REACTIONS (7)
  - Therapeutic product effect decreased [Unknown]
  - Agitation [Recovering/Resolving]
  - Ataxia [Unknown]
  - Sleep disorder [Recovering/Resolving]
  - Speech disorder [Unknown]
  - Tension [Unknown]
  - Thirst [Recovered/Resolved]
